FAERS Safety Report 5783182-9 (Version None)
Quarter: 2008Q2

REPORT INFORMATION
  Report Type: 
  Country: None (occurrence: None)
  Receive Date: 20080619
  Receipt Date: 20080619
  Transmission Date: 20081010
  Serious: Yes (Life-Threatening)
  Sender: FDA-Public Use
  Company Number: None

PATIENT
  Age: 17 Year
  Sex: Female
  Weight: 67.8 kg

DRUGS (3)
  1. ZOSYN [Suspect]
     Indication: CYSTIC FIBROSIS
     Dosage: 6000 MG PIPERACILLIN Q6 IV
     Route: 042
     Dates: start: 20080610, end: 20080616
  2. ZOSYN [Suspect]
     Indication: PSEUDOMONAS INFECTION
     Dosage: 6000 MG PIPERACILLIN Q6 IV
     Route: 042
     Dates: start: 20080610, end: 20080616
  3. ZOSYN [Suspect]
     Indication: SPUTUM CULTURE POSITIVE
     Dosage: 6000 MG PIPERACILLIN Q6 IV
     Route: 042
     Dates: start: 20080610, end: 20080616

REACTIONS (2)
  - APPENDICITIS [None]
  - HAEMOLYTIC ANAEMIA [None]
